FAERS Safety Report 21037381 (Version 3)
Quarter: 2022Q3

REPORT INFORMATION
  Report Type: Spontaneous
  Country: DE (occurrence: DE)
  Receive Date: 20220703
  Receipt Date: 20220922
  Transmission Date: 20221026
  Serious: Yes (Other)
  Sender: FDA-Public Use
  Company Number: DE-CELLTRION INC.-2022DE010181

PATIENT

DRUGS (8)
  1. RITUXIMAB [Suspect]
     Active Substance: RITUXIMAB
     Indication: Encephalitis autoimmune
     Dosage: IN WEEK 3 AND IN WEEK 7
     Route: 065
  2. RITUXIMAB [Suspect]
     Active Substance: RITUXIMAB
     Indication: Ovarian germ cell teratoma
     Dosage: UNK UNK, CYCLIC (2 CYCLES: 1000 MG IN WEEK 3 AND IN WEEK 7)
  3. METHYLPREDNISOLONE [Suspect]
     Active Substance: METHYLPREDNISOLONE
     Indication: Encephalitis autoimmune
     Dosage: OVER THE FIRST 5 DAYS
     Route: 042
  4. METHYLPREDNISOLONE [Suspect]
     Active Substance: METHYLPREDNISOLONE
     Indication: Ovarian germ cell teratoma
     Dosage: 500 MG, QD, OVER THE FIRST 5 DAYS
     Route: 042
  5. PREDNISOLONE [Suspect]
     Active Substance: PREDNISOLONE
     Indication: Encephalitis autoimmune
     Dosage: SLOWLY TAPERED TO 7.5 MG/DAYS MAINTENANCE DOSE
     Route: 048
  6. PREDNISOLONE [Suspect]
     Active Substance: PREDNISOLONE
     Indication: Ovarian germ cell teratoma
     Dosage: 1 MG/KG, QD, SLOWLY TAPERED TO 7.5 MG/DAYS MAINTENANCE DOSE
     Route: 048
  7. BORTEZOMIB [Suspect]
     Active Substance: BORTEZOMIB
     Indication: Encephalitis autoimmune
     Dosage: 1.3 MG/M2, 2 CYCLES. ADMINISTERED ON DAYS 1, 4, 8, AND 11; CONDUCTED IN MONTH 4 AND MONTH 6 WITH A P
  8. BORTEZOMIB [Suspect]
     Active Substance: BORTEZOMIB
     Indication: Ovarian germ cell teratoma
     Dosage: 1.3 MG/M2, CYCLIC (2 CYCLES, EACH WITH 1.3 MG/M2 ADMINISTERED ON DAYS 1, 4, 8, AND 11; CONDUCTED

REACTIONS (5)
  - Septic shock [Unknown]
  - Drug ineffective for unapproved indication [Unknown]
  - Off label use [Unknown]
  - Product use in unapproved indication [Unknown]
  - Drug ineffective [Unknown]
